FAERS Safety Report 9143217 (Version 1)
Quarter: 2013Q1

REPORT INFORMATION
  Report Type: Spontaneous
  Country: US (occurrence: US)
  Receive Date: 20130306
  Receipt Date: 20130306
  Transmission Date: 20140127
  Serious: No
  Sender: FDA-Public Use
  Company Number: US-ENDO PHARMACEUTICALS INC.-OPER20110065

PATIENT
  Age: 70 Year
  Sex: Female

DRUGS (1)
  1. OPANA ER 20MG [Suspect]
     Indication: PAIN
     Dosage: 20 MG
     Route: 048

REACTIONS (2)
  - Swollen tongue [Recovered/Resolved]
  - Reaction to colouring [Recovered/Resolved]
